FAERS Safety Report 5884249-7 (Version None)
Quarter: 2008Q3

REPORT INFORMATION
  Report Type: 
  Country: None (occurrence: None)
  Receive Date: 20080915
  Receipt Date: 20080905
  Transmission Date: 20090109
  Serious: Yes (Other)
  Sender: FDA-Public Use
  Company Number: US-ROCHE-503106

PATIENT
  Sex: Female
  Weight: 61.7 kg

DRUGS (2)
  1. ACCUTANE [Suspect]
     Indication: ACNE
     Route: 065
     Dates: start: 20011010, end: 20020423
  2. ALLI [Suspect]
     Indication: WEIGHT DECREASED
     Route: 065
     Dates: start: 20070717

REACTIONS (19)
  - ARTHRALGIA [None]
  - BURSITIS [None]
  - COLITIS [None]
  - COLITIS ULCERATIVE [None]
  - CONSTIPATION [None]
  - DECREASED APPETITE [None]
  - EMOTIONAL DISORDER [None]
  - EMOTIONAL DISTRESS [None]
  - HAEMATEMESIS [None]
  - INFECTIOUS MONONUCLEOSIS [None]
  - INFLAMMATORY BOWEL DISEASE [None]
  - IRRITABLE BOWEL SYNDROME [None]
  - LIGAMENT RUPTURE [None]
  - PROCTITIS [None]
  - PROCTITIS ULCERATIVE [None]
  - SYNOVIAL CYST [None]
  - TENDON RUPTURE [None]
  - TENDONITIS [None]
  - TONSILLITIS [None]
